FAERS Safety Report 23468046 (Version 6)
Quarter: 2024Q2

REPORT INFORMATION
  Report Type: Spontaneous
  Country: US (occurrence: US)
  Receive Date: 20240201
  Receipt Date: 20240425
  Transmission Date: 20240716
  Serious: Yes (Other)
  Sender: FDA-Public Use
  Company Number: US-BRISTOL-MYERS SQUIBB COMPANY-2024-002044

PATIENT
  Age: 75 Year
  Sex: Female

DRUGS (2)
  1. LENALIDOMIDE [Suspect]
     Active Substance: LENALIDOMIDE
     Indication: Plasma cell myeloma
     Route: 048
     Dates: start: 20231120
  2. LENALIDOMIDE [Suspect]
     Active Substance: LENALIDOMIDE
     Route: 048

REACTIONS (7)
  - White blood cell count decreased [Not Recovered/Not Resolved]
  - Decreased appetite [Recovered/Resolved]
  - Chest pain [Unknown]
  - Product dose omission issue [Unknown]
  - Product prescribing issue [Unknown]
  - Ageusia [Recovered/Resolved]
  - Tremor [Not Recovered/Not Resolved]
